FAERS Safety Report 26097409 (Version 2)
Quarter: 2025Q4

REPORT INFORMATION
  Report Type: Spontaneous
  Country: US (occurrence: US)
  Receive Date: 20251127
  Receipt Date: 20251217
  Transmission Date: 20260118
  Serious: Yes (Other)
  Sender: ALEXION PHARMACEUTICALS
  Company Number: US-AstraZeneca-CH-01000230A

PATIENT
  Sex: Male
  Weight: 90.703 kg

DRUGS (1)
  1. STRENSIQ [Suspect]
     Active Substance: ASFOTASE ALFA
     Indication: Hypophosphatasia
     Dosage: 80 MILLIGRAM, SIX TIMES/WEEK
     Dates: start: 202505

REACTIONS (4)
  - Neuropathy peripheral [Not Recovered/Not Resolved]
  - Disturbance in attention [Unknown]
  - Migraine with aura [Unknown]
  - Visual impairment [Unknown]
